FAERS Safety Report 5574728-4 (Version None)
Quarter: 2007Q4

REPORT INFORMATION
  Report Type: 
  Country: None (occurrence: None)
  Receive Date: 20071221
  Receipt Date: 20071221
  Transmission Date: 20080405
  Serious: Yes (Hospitalization)
  Sender: FDA-Public Use
  Company Number: None

PATIENT
  Age: 92 Year
  Sex: Female
  Weight: 45.3597 kg

DRUGS (1)
  1. RIVASTIGMINE TARTRATE [Suspect]
     Indication: MEMORY IMPAIRMENT
     Dosage: 1.5 MG BID PO  FEW DAYS
     Route: 048

REACTIONS (4)
  - BACK PAIN [None]
  - MUSCLE SPASMS [None]
  - MUSCULAR WEAKNESS [None]
  - TREMOR [None]
